FAERS Safety Report 4809319-3 (Version None)
Quarter: 2005Q4

REPORT INFORMATION
  Report Type: 
  Country: None (occurrence: None)
  Receive Date: 20051021
  Receipt Date: 20030128
  Transmission Date: 20060501
  Serious: No
  Sender: FDA-Public Use
  Company Number: JP_030100360

PATIENT
  Age: 52 Year
  Sex: Female
  Weight: 44 kg

DRUGS (10)
  1. ZYPREXA [Suspect]
     Indication: SCHIZOPHRENIA
     Dosage: 20 MG/DAY
     Dates: start: 20011026, end: 20030128
  2. RISPERDAL [Concomitant]
  3. LEVOTOMIN (LEVOMEPROMAZINE MALEATE) [Concomitant]
  4. ARTANE [Concomitant]
  5. NITRAZEPAM [Concomitant]
  6. MAGNESIUM OXIDE [Concomitant]
  7. PANTOSIN (PANTETHINE) [Concomitant]
  8. PURSENNID (SENNA LEAF) [Concomitant]
  9. ROCORNAL (TRAPIDIL) [Concomitant]
  10. RISUMIC (AMEZINIUM METILSULFATE) [Concomitant]

REACTIONS (2)
  - CONDITION AGGRAVATED [None]
  - PLATELET COUNT INCREASED [None]
